FAERS Safety Report 12654036 (Version 1)
Quarter: 2016Q3

REPORT INFORMATION
  Report Type: Spontaneous
  Country: US (occurrence: US)
  Receive Date: 20160816
  Receipt Date: 20160816
  Transmission Date: 20161109
  Serious: No
  Sender: FDA-Public Use
  Company Number: PHEH2016US019585

PATIENT
  Age: 67 Year
  Sex: Female

DRUGS (1)
  1. COSENTYX [Suspect]
     Active Substance: SECUKINUMAB
     Indication: PSORIASIS
     Dosage: 300 MG, QMO
     Route: 058
     Dates: start: 20160401

REACTIONS (5)
  - Dyspnoea [Unknown]
  - Vision blurred [Unknown]
  - Lacrimation increased [Unknown]
  - Swelling face [Unknown]
  - Psoriasis [Unknown]

NARRATIVE: CASE EVENT DATE: 20160804
